FAERS Safety Report 7918868-0 (Version None)
Quarter: 2011Q4

REPORT INFORMATION
  Report Type: 
  Country: None (occurrence: None)
  Receive Date: 20111116
  Receipt Date: 20111109
  Transmission Date: 20120403
  Serious: Yes (Other)
  Sender: FDA-Public Use
  Company Number: PHHY2011GB098647

PATIENT
  Age: 85 Year
  Sex: Male
  Weight: 73 kg

DRUGS (10)
  1. METFORMIN HCL [Concomitant]
     Dosage: 850 MG, UNK
  2. ASPIRIN [Concomitant]
     Dosage: 75 MG, UNK
  3. AXORID [Concomitant]
     Indication: ARTHRITIS
     Dosage: 200 MG, UNK
     Route: 048
     Dates: start: 20110319
  4. BENDROFLUMETHIAZIDE [Concomitant]
     Dosage: 2.5 MG, UNK
     Route: 048
  5. DOXAZOSIN MESYLATE [Concomitant]
     Dosage: 4 MG, UNK
  6. GLIPIZIDE [Concomitant]
     Dosage: 2.5 MG, UNK
  7. BISOPROLOL FUMARATE [Suspect]
     Indication: ATRIAL FIBRILLATION
     Dosage: 2.5 MG, UNK
     Route: 048
     Dates: start: 20111012, end: 20111019
  8. AMLODIPINE [Concomitant]
     Dosage: 10 MG, UNK
  9. RAMIPRIL [Concomitant]
     Dosage: 10 MG, UNK
     Route: 048
  10. ATORVASTATIN [Concomitant]
     Dosage: 20 MG, UNK

REACTIONS (1)
  - HYPERSEXUALITY [None]
